FAERS Safety Report 4748745-8 (Version None)
Quarter: 2005Q3

REPORT INFORMATION
  Report Type: 
  Country: None (occurrence: None)
  Receive Date: 20050818
  Receipt Date: 20050803
  Transmission Date: 20060218
  Serious: Yes (Death)
  Sender: FDA-Public Use
  Company Number: 2005S1003277

PATIENT
  Age: 47 Year
  Sex: Female
  Weight: 78.9259 kg

DRUGS (4)
  1. CLOZAPINE [Suspect]
     Indication: SCHIZOPHRENIA
     Dosage: 50 MG; QAM;PO
     Route: 048
     Dates: start: 20020501, end: 20050401
  2. CLOZAPINE [Suspect]
     Indication: SCHIZOPHRENIA
     Dosage: 200 MG; QAM; PO ; 300 MG; HS; PO
     Route: 048
     Dates: start: 20020501, end: 20050301
  3. CLOZAPINE [Suspect]
     Indication: SCHIZOPHRENIA
     Dosage: 200 MG; QAM; PO ; 300 MG; HS; PO
     Route: 048
     Dates: start: 20020501, end: 20050301
  4. BENZATROPINE [Concomitant]

REACTIONS (1)
  - DEATH [None]
